FAERS Safety Report 20595741 (Version 1)
Quarter: 2022Q1

REPORT INFORMATION
  Report Type: Spontaneous
  Country: US (occurrence: None)
  Receive Date: 20220315
  Receipt Date: 20220315
  Transmission Date: 20220424
  Serious: Yes (Hospitalization)
  Sender: FDA-Public Use
  Company Number: None

PATIENT
  Sex: Female

DRUGS (2)
  1. BENLYSTA [Suspect]
     Active Substance: BELIMUMAB
     Indication: Osteoporosis
     Dosage: INJECT 1 PEN UNDER THE SKIN (SUBCUTANEOUS  INJECTION) EVERY WEEK
     Route: 058
     Dates: start: 20200626
  2. RECLAST [Concomitant]
     Active Substance: ZOLEDRONIC ACID

REACTIONS (3)
  - Systemic lupus erythematosus [None]
  - Pneumonia [None]
  - Therapy interrupted [None]
